FAERS Safety Report 5749054-0 (Version None)
Quarter: 2008Q2

REPORT INFORMATION
  Report Type: 
  Country: None (occurrence: None)
  Receive Date: 20080527
  Receipt Date: 20080523
  Transmission Date: 20081010
  Serious: Yes (Death)
  Sender: FDA-Public Use
  Company Number: JP-BRISTOL-MYERS SQUIBB COMPANY-14188049

PATIENT
  Age: 73 Year
  Sex: Male

DRUGS (3)
  1. TAXOL [Suspect]
     Indication: LUNG NEOPLASM MALIGNANT
     Dosage: TAXOL INJ 100MG VIAL 1
     Route: 041
     Dates: start: 20080508, end: 20080508
  2. CARBOMERCK [Concomitant]
     Route: 041
     Dates: start: 20080508, end: 20080508
  3. DECADRON [Concomitant]
     Route: 041
     Dates: start: 20080508, end: 20080508

REACTIONS (2)
  - ARRHYTHMIA [None]
  - CARDIAC FAILURE [None]
